FAERS Safety Report 9341383 (Version 1)
Quarter: 2013Q2

REPORT INFORMATION
  Report Type: Spontaneous
  Country: FR (occurrence: FR)
  Receive Date: 20130611
  Receipt Date: 20130611
  Transmission Date: 20140414
  Serious: Yes (Other)
  Sender: FDA-Public Use
  Company Number: FR-JNJFOC-20130603019

PATIENT
  Age: 60 Year
  Sex: Male

DRUGS (2)
  1. XARELTO [Suspect]
     Indication: PULMONARY EMBOLISM
     Route: 048
     Dates: start: 201301, end: 20130330
  2. PREVISCAN (FLUINDIONE) [Concomitant]
     Route: 048
     Dates: start: 2007, end: 201301

REACTIONS (1)
  - Dyspnoea exertional [Recovered/Resolved]
